FAERS Safety Report 8764637 (Version 1)
Quarter: 2012Q4

REPORT INFORMATION
  Report Type: 
  Country: CN (occurrence: CN)
  Receive Date: 20120831
  Receipt Date: 20120831
  Transmission Date: 20130627
  Serious: Yes (Other)
  Sender: FDA-Public Use
  Company Number: CN-ASTRAZENECA-2012SE64040

PATIENT
  Sex: Male
  Weight: 56 kg

DRUGS (3)
  1. BUDESONIDE [Suspect]
     Indication: THERAPEUTIC PROCEDURE
     Dosage: Three times a day
     Route: 055
     Dates: start: 20090810, end: 20090812
  2. COMPOUND IPRATROPIUM BROMIDE SOLUTION FOR INHALATION [Suspect]
     Indication: THERAPEUTIC PROCEDURE
     Route: 055
     Dates: start: 20090810, end: 20090812
  3. AMBROXOL [Suspect]
     Indication: THERAPEUTIC PROCEDURE
     Route: 055
     Dates: start: 20090810, end: 20090812

REACTIONS (3)
  - Laryngeal oedema [Recovered/Resolved]
  - Throat irritation [Recovered/Resolved]
  - Dysphonia [Recovered/Resolved]
